FAERS Safety Report 9602131 (Version 1)
Quarter: 2013Q4

REPORT INFORMATION
  Report Type: Spontaneous
  Country: IN (occurrence: IN)
  Receive Date: 20131007
  Receipt Date: 20131007
  Transmission Date: 20140711
  Serious: Yes (Other)
  Sender: FDA-Public Use
  Company Number: IN-MYLANLABS-2013S1021826

PATIENT
  Age: 18 Year
  Sex: Male

DRUGS (3)
  1. VINCRISTINE [Suspect]
     Indication: T-CELL TYPE ACUTE LEUKAEMIA
     Dosage: PART OF AUGMENTED BFM PROTOCOL (INDUCTION)
     Route: 042
  2. CYTARABINE [Suspect]
     Indication: T-CELL TYPE ACUTE LEUKAEMIA
     Dosage: PART OF AUGMENTED BFM PROTOCOL (INDUCTION)
     Route: 037
  3. METHOTREXATE [Suspect]
     Indication: T-CELL TYPE ACUTE LEUKAEMIA
     Dosage: PART OF AUGMENTED BFM PROTOCOL (INDUCTION)
     Route: 065

REACTIONS (5)
  - Neuropathy peripheral [Recovering/Resolving]
  - Leukoencephalopathy [Recovering/Resolving]
  - Central nervous system lesion [Recovering/Resolving]
  - Headache [Recovering/Resolving]
  - Grand mal convulsion [Recovering/Resolving]
